FAERS Safety Report 14055135 (Version 4)
Quarter: 2017Q4

REPORT INFORMATION
  Report Type: Spontaneous
  Country: AT (occurrence: AT)
  Receive Date: 20171006
  Receipt Date: 20171017
  Transmission Date: 20180321
  Serious: Yes (Other)
  Sender: FDA-Public Use
  Company Number: AU-CIPLA LTD.-2017AT16034

PATIENT

DRUGS (7)
  1. PREGABALIN. [Concomitant]
     Active Substance: PREGABALIN
     Indication: EPILEPSY
     Dosage: 150 MG, QD
     Route: 065
  2. SERTRALINE [Suspect]
     Active Substance: SERTRALINE HYDROCHLORIDE
     Indication: DEPRESSED MOOD
     Dosage: 25 MG
     Route: 065
  3. LEVETIRACETAM. [Concomitant]
     Active Substance: LEVETIRACETAM
     Indication: GENERALISED TONIC-CLONIC SEIZURE
     Dosage: 3000 MG, QD
     Route: 065
  4. LEVETIRACETAM. [Concomitant]
     Active Substance: LEVETIRACETAM
     Indication: EPILEPSY
     Dosage: 3000 MG, QD
     Route: 065
  5. CLONAZEPAM. [Concomitant]
     Active Substance: CLONAZEPAM
     Indication: EPILEPSY
     Dosage: 2 MG, QD
     Route: 065
  6. PREGABALIN. [Concomitant]
     Active Substance: PREGABALIN
     Indication: GENERALISED TONIC-CLONIC SEIZURE
     Dosage: 150 MG, QD
     Route: 065
  7. CLONAZEPAM. [Concomitant]
     Active Substance: CLONAZEPAM
     Indication: GENERALISED TONIC-CLONIC SEIZURE

REACTIONS (4)
  - Mitochondrial toxicity [Recovering/Resolving]
  - Asthenia [Unknown]
  - Headache [Unknown]
  - Fall [Unknown]
